FAERS Safety Report 7489378-2 (Version None)
Quarter: 2011Q2

REPORT INFORMATION
  Report Type: 
  Country: None (occurrence: None)
  Receive Date: 20110518
  Receipt Date: 20110511
  Transmission Date: 20111010
  Serious: Yes (Other)
  Sender: FDA-Public Use
  Company Number: CH-ABBOTT-11P-151-0726283-00

PATIENT
  Age: 35 Year
  Sex: Female

DRUGS (3)
  1. HUMIRA [Suspect]
     Indication: RHEUMATOID ARTHRITIS
     Dates: end: 20100729
  2. PREDNISONE [Concomitant]
     Indication: RHEUMATOID ARTHRITIS
     Dosage: OID
  3. SANDIMMUNE [Concomitant]
     Indication: RHEUMATOID ARTHRITIS
     Dosage: OID

REACTIONS (1)
  - CEPHALO-PELVIC DISPROPORTION [None]
